FAERS Safety Report 9147387 (Version 1)
Quarter: 2013Q1

REPORT INFORMATION
  Report Type: Spontaneous
  Country: PH (occurrence: PH)
  Receive Date: 20130307
  Receipt Date: 20130307
  Transmission Date: 20140127
  Serious: Yes (Hospitalization)
  Sender: FDA-Public Use
  Company Number: PH-GLAXOSMITHKLINE-B0868885A

PATIENT
  Age: 67 Year
  Sex: Male

DRUGS (2)
  1. DUODART [Suspect]
     Indication: BENIGN PROSTATIC HYPERPLASIA
     Route: 048
  2. PREDNISONE [Suspect]
     Indication: PRODUCT USED FOR UNKNOWN INDICATION
     Route: 065

REACTIONS (21)
  - Melaena [Unknown]
  - Gastrointestinal haemorrhage [Unknown]
  - Hypersensitivity [Unknown]
  - Rash pruritic [Unknown]
  - Dysuria [Recovering/Resolving]
  - Oedema peripheral [Unknown]
  - Skin necrosis [Unknown]
  - Bronchospasm [Unknown]
  - Face oedema [Unknown]
  - Laryngeal oedema [Unknown]
  - Hypotension [Unknown]
  - Nausea [Unknown]
  - Vomiting [Unknown]
  - Diarrhoea [Unknown]
  - Pyrexia [Unknown]
  - Arthropathy [Unknown]
  - Urticaria [Unknown]
  - Bone marrow failure [Unknown]
  - Eosinophilia [Unknown]
  - Coombs test positive [Unknown]
  - Proteinuria [Unknown]
